FAERS Safety Report 22540587 (Version 1)
Quarter: 2023Q2

REPORT INFORMATION
  Report Type: Spontaneous
  Country: CN (occurrence: CN)
  Receive Date: 20230609
  Receipt Date: 20230609
  Transmission Date: 20230721
  Serious: Yes (Other)
  Sender: FDA-Public Use
  Company Number: CN-GLAXOSMITHKLINE-CN2023APC079367

PATIENT

DRUGS (1)
  1. ANORO ELLIPTA [Suspect]
     Active Substance: UMECLIDINIUM BROMIDE\VILANTEROL TRIFENATATE
     Indication: Chronic obstructive pulmonary disease
     Dosage: 1 PUFF(S), QD, 30 INHALATIONS, (STARTED 3 MONTHS AGO AND STOPPED 1 MONTH AGO)
     Route: 055
     Dates: start: 2023, end: 2023

REACTIONS (2)
  - Lung neoplasm malignant [Not Recovered/Not Resolved]
  - Therapy cessation [Unknown]
